FAERS Safety Report 13455686 (Version 4)
Quarter: 2018Q2

REPORT INFORMATION
  Report Type: Report from Study
  Country: US (occurrence: US)
  Receive Date: 20170418
  Receipt Date: 20180621
  Transmission Date: 20180711
  Serious: Yes (Hospitalization)
  Sender: FDA-Public Use
  Company Number: US-ACTELION-A-US2017-152586

PATIENT
  Age: 29 Year
  Sex: Female
  Weight: 65.76 kg

DRUGS (3)
  1. OPSUMIT [Suspect]
     Active Substance: MACITENTAN
     Indication: PULMONARY ARTERIAL HYPERTENSION
     Dosage: 10 MG, QD
     Route: 048
  2. COUMADIN [Concomitant]
     Active Substance: WARFARIN SODIUM
  3. TYVASO [Concomitant]
     Active Substance: TREPROSTINIL

REACTIONS (11)
  - Anxiety [Unknown]
  - Pharyngeal oedema [Unknown]
  - Chest pain [Unknown]
  - Treatment noncompliance [Unknown]
  - Unevaluable event [Unknown]
  - Hypotension [Unknown]
  - Bronchitis [Unknown]
  - Malaise [Unknown]
  - Cough [Unknown]
  - Drug dose omission [Unknown]
  - Dyspnoea [Unknown]
